FAERS Safety Report 7109179-4 (Version None)
Quarter: 2010Q4

REPORT INFORMATION
  Report Type: 
  Country: None (occurrence: None)
  Receive Date: 20101117
  Receipt Date: 20101108
  Transmission Date: 20110411
  Serious: Yes (Other)
  Sender: FDA-Public Use
  Company Number: JP-GILEAD-E2B_00000908

PATIENT
  Age: 52 Year
  Sex: Male

DRUGS (3)
  1. HEPSERA [Suspect]
     Indication: HEPATITIS B
     Route: 048
  2. ZEFIX [Suspect]
     Indication: HEPATITIS B
     Route: 048
  3. ENTECAVIR [Concomitant]
     Indication: HEPATITIS B

REACTIONS (1)
  - RENAL DISORDER [None]
